FAERS Safety Report 8071990-3 (Version None)
Quarter: 2012Q1

REPORT INFORMATION
  Report Type: 
  Country: None (occurrence: None)
  Receive Date: 20120126
  Receipt Date: 20120117
  Transmission Date: 20120608
  Serious: Yes (Hospitalization)
  Sender: FDA-Public Use
  Company Number: US-BAYER-2012-007924

PATIENT
  Age: 40 Year
  Sex: Female

DRUGS (3)
  1. DROSPIRENONE AND ETHINYL ESTRADIOL [Suspect]
     Route: 048
  2. YASMIN [Suspect]
     Route: 048
  3. CLORAZEPATE DIPOTASSIUM [Concomitant]
     Dosage: 7.5 MG, UNK
     Dates: start: 20080804

REACTIONS (1)
  - DEEP VEIN THROMBOSIS [None]
